FAERS Safety Report 19642574 (Version 1)
Quarter: 2021Q3

REPORT INFORMATION
  Report Type: Spontaneous
  Country: CN (occurrence: CN)
  Receive Date: 20210730
  Receipt Date: 20210730
  Transmission Date: 20211014
  Serious: Yes (Hospitalization)
  Sender: FDA-Public Use
  Company Number: CN-PFIZER INC-202100910120

PATIENT
  Age: 78 Year
  Sex: Male

DRUGS (3)
  1. RIVAROXABAN [Suspect]
     Active Substance: RIVAROXABAN
     Indication: ARTERIAL STENT INSERTION
     Dosage: 10 MG, 1X/DAY
     Route: 048
     Dates: start: 20200901, end: 20210628
  2. ATORVASTATIN CALCIUM. [Suspect]
     Active Substance: ATORVASTATIN CALCIUM
     Indication: ARTERIAL STENT INSERTION
     Dosage: 20 MG, 1X/DAY
     Route: 048
     Dates: start: 20200901, end: 20210628
  3. BERAPROST SODIUM [Suspect]
     Active Substance: BERAPROST SODIUM
     Indication: ARTERIAL STENT INSERTION
     Dosage: 40 UG, 3X/DAY
     Route: 048
     Dates: start: 20200901, end: 20210628

REACTIONS (5)
  - Drug eruption [Recovering/Resolving]
  - Eczema [Recovering/Resolving]
  - Skin discolouration [Recovering/Resolving]
  - Exfoliative rash [Recovering/Resolving]
  - Rash pruritic [Recovering/Resolving]

NARRATIVE: CASE EVENT DATE: 20210628
